FAERS Safety Report 4286370-6 (Version None)
Quarter: 2004Q1

REPORT INFORMATION
  Report Type: 
  Country: None (occurrence: None)
  Receive Date: 20040121
  Receipt Date: 20030505
  Transmission Date: 20041129
  Serious: Yes (Hospitalization)
  Sender: FDA-Public Use
  Company Number: A03200300956

PATIENT
  Age: 78 Year
  Sex: Male
  Weight: 81.6475 kg

DRUGS (7)
  1. PLAVIX [Suspect]
     Indication: POOR PERIPHERAL CIRCULATION
     Dosage: 75 MG QD-ORAL
     Route: 048
     Dates: start: 20020301, end: 20030413
  2. ACETYLSALICYLIC ACID SRT [Concomitant]
  3. QUINAPRIL HYDROCHLORIDE [Concomitant]
  4. ATORVASTATIN [Concomitant]
  5. AMLODIPINE BESYLATE [Concomitant]
  6. ATENOLOL [Concomitant]
  7. PENTOXIFYLLINE [Concomitant]

REACTIONS (1)
  - EPISTAXIS [None]
